FAERS Safety Report 20968717 (Version 1)
Quarter: 2022Q2

REPORT INFORMATION
  Report Type: Report from Study
  Country: US (occurrence: US)
  Receive Date: 20220616
  Receipt Date: 20220616
  Transmission Date: 20220721
  Serious: Yes (Other)
  Sender: FDA-Public Use
  Company Number: US-BRISTOL-MYERS SQUIBB COMPANY-2022-053030

PATIENT
  Age: 46 Year
  Sex: Male

DRUGS (1)
  1. ZEPOSIA [Suspect]
     Active Substance: OZANIMOD HYDROCHLORIDE
     Indication: Colitis ulcerative
     Dosage: 0.23-0.92 MG
     Route: 048
     Dates: start: 20220502, end: 20220516

REACTIONS (9)
  - Irritable bowel syndrome [Unknown]
  - Myocardial infarction [Unknown]
  - Abscess limb [Unknown]
  - Flank pain [Unknown]
  - Arthralgia [Unknown]
  - Depression [Unknown]
  - Heart rate increased [Unknown]
  - Blood pressure increased [Unknown]
  - Gait disturbance [Unknown]
